FAERS Safety Report 4946399-9 (Version None)
Quarter: 2006Q1

REPORT INFORMATION
  Report Type: 
  Country: None (occurrence: None)
  Receive Date: 20060317
  Receipt Date: 20060308
  Transmission Date: 20060701
  Serious: Yes (Other)
  Sender: FDA-Public Use
  Company Number: PHHO2006CL04028

PATIENT
  Age: 62 Year
  Sex: Female

DRUGS (5)
  1. GLUCOSAMINE [Concomitant]
  2. FLUNARIZINE [Concomitant]
  3. LANSOPRAZOLE [Concomitant]
  4. DOMPERIDONE [Concomitant]
  5. ZELMAC / HTF 919A [Suspect]
     Route: 048

REACTIONS (1)
  - APPENDICITIS [None]
